FAERS Safety Report 13139238 (Version 1)
Quarter: 2017Q1

REPORT INFORMATION
  Report Type: Spontaneous
  Country: GB (occurrence: GB)
  Receive Date: 20170123
  Receipt Date: 20170123
  Transmission Date: 20170428
  Serious: Yes (Life-Threatening)
  Sender: FDA-Public Use
  Company Number: GB-PFIZER INC-2017026095

PATIENT
  Age: 59 Year
  Sex: Female
  Weight: 90 kg

DRUGS (6)
  1. ADCAL /00056901/ [Concomitant]
     Active Substance: CARBAZOCHROME
     Dosage: 1 DF, 2X/DAY
  2. WARFARIN SODIUM. [Interacting]
     Active Substance: WARFARIN SODIUM
     Indication: ANTIPHOSPHOLIPID SYNDROME
     Dosage: 8MG MONDAYS AND FRIDAYS, 9MG ON OTHER DAYS (8.71MG/DAY).
     Route: 048
     Dates: start: 19960610
  3. ATORVASTATIN [Concomitant]
     Active Substance: ATORVASTATIN
     Dosage: 40 MG, 1X/DAY (AT NIGHT)
  4. BETAHISTINE [Concomitant]
     Active Substance: BETAHISTINE
     Dosage: MEDICINE TAKEN UNCHANGED FOR MORE THAN 5 YEARS
  5. DOXYCYCLINE MONOHYDRATE [Suspect]
     Active Substance: DOXYCYCLINE
     Indication: LOWER RESPIRATORY TRACT INFECTION
     Dosage: 200MG INITIALLY THEN 1 ONCE A DAY
     Route: 048
     Dates: start: 20170109, end: 20170110
  6. METFORMIN [Concomitant]
     Active Substance: METFORMIN HYDROCHLORIDE
     Dosage: 500 MG, 3X/DAY

REACTIONS (2)
  - Drug interaction [Recovering/Resolving]
  - International normalised ratio increased [Recovering/Resolving]

NARRATIVE: CASE EVENT DATE: 20170110
